FAERS Safety Report 9698106 (Version 2)
Quarter: 2013Q4

REPORT INFORMATION
  Report Type: Report from Study
  Country: NL (occurrence: NL)
  Receive Date: 20131120
  Receipt Date: 20131126
  Transmission Date: 20140711
  Serious: Yes (Hospitalization)
  Sender: FDA-Public Use
  Company Number: NL-JNJFOC-20131107547

PATIENT
  Age: 27 Year
  Sex: Male
  Weight: 65.7 kg

DRUGS (4)
  1. INFLIXIMAB, RECOMBINANT [Suspect]
     Indication: CROHN^S DISEASE
     Route: 042
     Dates: start: 20131011
  2. INFLIXIMAB, RECOMBINANT [Suspect]
     Indication: CROHN^S DISEASE
     Route: 042
     Dates: start: 20131025, end: 20131108
  3. CIPROFLOXACIN [Concomitant]
     Indication: FISTULA
     Route: 048
     Dates: start: 20130723
  4. AZATHIOPRINE [Concomitant]
     Indication: CROHN^S DISEASE
     Route: 048
     Dates: start: 20120809

REACTIONS (2)
  - Ileal stenosis [Recovered/Resolved with Sequelae]
  - Ileus [Recovered/Resolved with Sequelae]
